FAERS Safety Report 10882096 (Version 5)
Quarter: 2015Q2

REPORT INFORMATION
  Report Type: Other
  Country: IT (occurrence: IT)
  Receive Date: 20150303
  Receipt Date: 20150518
  Transmission Date: 20150821
  Serious: Yes (Hospitalization)
  Sender: FDA-Public Use
  Company Number: IT-TAKEDA-2015TEU001815

PATIENT
  Age: 75 Year
  Sex: Male

DRUGS (16)
  1. LASIX [Suspect]
     Active Substance: FUROSEMIDE
     Indication: DRUG ABUSE
     Dosage: 100 MG, UNK
     Route: 048
     Dates: start: 20150209, end: 20150209
  2. ALPRAZOLAM. [Suspect]
     Active Substance: ALPRAZOLAM
     Indication: DRUG ABUSE
     Dosage: 4 MG
     Route: 048
     Dates: start: 20150209, end: 20150209
  3. NORVASC [Suspect]
     Active Substance: AMLODIPINE BESYLATE
     Indication: DRUG ABUSE
     Dosage: 20 MG, UNK
     Route: 048
     Dates: start: 20150209, end: 20150209
  4. KEPPRA [Suspect]
     Active Substance: LEVETIRACETAM
     Indication: DRUG ABUSE
     Dosage: 2000 MG
     Route: 048
     Dates: start: 20150209, end: 20150209
  5. KEPPRA [Suspect]
     Active Substance: LEVETIRACETAM
     Dosage: UNK
     Route: 065
  6. ZOLPIDEM [Suspect]
     Active Substance: ZOLPIDEM\ZOLPIDEM TARTRATE
     Indication: DRUG ABUSE
     Dosage: 10 MG, UNK
     Route: 048
     Dates: start: 20150209, end: 20150209
  7. ZOLPIDEM [Suspect]
     Active Substance: ZOLPIDEM\ZOLPIDEM TARTRATE
     Dosage: UNK
     Route: 065
  8. ALPRAZOLAM. [Suspect]
     Active Substance: ALPRAZOLAM
     Dosage: UNK
     Route: 065
  9. LASIX [Suspect]
     Active Substance: FUROSEMIDE
     Dosage: UNK
     Route: 065
  10. LANSOPRAZOLE. [Suspect]
     Active Substance: LANSOPRAZOLE
     Indication: DRUG ABUSE
     Dosage: 60 MG, UNK
     Route: 048
     Dates: start: 20150209, end: 20150209
  11. DILATREND [Suspect]
     Active Substance: CARVEDILOL
     Dosage: UNK
     Route: 065
  12. NORVASC [Suspect]
     Active Substance: AMLODIPINE BESYLATE
     Dosage: UNK
     Route: 065
  13. LANSOPRAZOLE. [Suspect]
     Active Substance: LANSOPRAZOLE
     Dosage: UNK
     Route: 065
  14. DILATREND [Suspect]
     Active Substance: CARVEDILOL
     Indication: DRUG ABUSE
     Dosage: 50 MG, UNK
     Route: 048
     Dates: start: 20150209, end: 20150209
  15. SIVASTIN [Suspect]
     Active Substance: SIMVASTATIN
     Indication: DRUG ABUSE
     Dosage: 80 MG, UNK
     Route: 048
     Dates: start: 20150209, end: 20150209
  16. SIVASTIN [Suspect]
     Active Substance: SIMVASTATIN
     Dosage: UNK
     Route: 065

REACTIONS (2)
  - Syncope [Recovered/Resolved]
  - Drug abuse [Recovered/Resolved]

NARRATIVE: CASE EVENT DATE: 20150209
